FAERS Safety Report 24731781 (Version 1)
Quarter: 2024Q4

REPORT INFORMATION
  Report Type: Report from Study
  Country: BE (occurrence: BE)
  Receive Date: 20241213
  Receipt Date: 20241213
  Transmission Date: 20250115
  Serious: Yes (Other)
  Sender: ABBVIE
  Company Number: BE-ABBVIE-6042854

PATIENT
  Age: 92 Year
  Sex: Male

DRUGS (6)
  1. FOSCARBIDOPA\FOSLEVODOPA [Suspect]
     Active Substance: FOSCARBIDOPA\FOSLEVODOPA
     Indication: Parkinson^s disease
     Dosage: LOADING DOSE:1.20 ML, BASE INFUSION RATE:0.37 ML/H, EXTRA DOSAGE:0.20 ML. THERAPY DURATION: REMAI...
     Route: 058
     Dates: start: 20240719, end: 20241014
  2. FOSCARBIDOPA\FOSLEVODOPA [Suspect]
     Active Substance: FOSCARBIDOPA\FOSLEVODOPA
     Dosage: LOADING DOSE:1.20 ML, BASE INFUSION RATE:0.37 ML/H, HIGH INFUSION RATE:0.37 ML/H, LOW INFUSION RA...
     Route: 058
     Dates: start: 20241014
  3. DONEPEZIL [Concomitant]
     Active Substance: DONEPEZIL
     Indication: Memory impairment
     Route: 048
  4. STALEVO [Concomitant]
     Active Substance: CARBIDOPA\ENTACAPONE\LEVODOPA
     Indication: Parkinson^s disease
     Dosage: FREQUENCY: AT 7H 30/11H/16H
  5. STALEVO [Concomitant]
     Active Substance: CARBIDOPA\ENTACAPONE\LEVODOPA
     Indication: Parkinson^s disease
     Dosage: FREQUENCY: AT 8 P.M.
  6. BENSERAZIDE\LEVODOPA [Concomitant]
     Active Substance: BENSERAZIDE\LEVODOPA
     Indication: Product used for unknown indication
     Dosage: FREQUENCY: AT 10 PM

REACTIONS (2)
  - Rehabilitation therapy [Unknown]
  - Device issue [Unknown]

NARRATIVE: CASE EVENT DATE: 20240101
